FAERS Safety Report 16088217 (Version 1)
Quarter: 2019Q1

REPORT INFORMATION
  Report Type: Spontaneous
  Country: DE (occurrence: DE)
  Receive Date: 20190319
  Receipt Date: 20190319
  Transmission Date: 20190418
  Serious: Yes (Death, Life-Threatening, Other)
  Sender: FDA-Public Use
  Company Number: DE-GLAXOSMITHKLINE-DE2019048737

PATIENT
  Age: 60 Year
  Sex: Male
  Weight: 86 kg

DRUGS (4)
  1. DICLOFENAC [Suspect]
     Active Substance: DICLOFENAC
     Indication: PHLEBITIS
     Dosage: 150 MG, QD
     Route: 048
     Dates: start: 20030120, end: 20030203
  2. MARCUMAR [Suspect]
     Active Substance: PHENPROCOUMON
     Indication: VENOUS THROMBOSIS
     Dosage: AS NECESSARY
     Route: 048
  3. PARACODIN [Suspect]
     Active Substance: DIHYDROCODEINE BITARTRATE
     Indication: BRONCHITIS
     Dosage: AS NECESSARY
     Route: 048
     Dates: start: 20030131, end: 20030203
  4. DOXY [Concomitant]
     Active Substance: DOXYCYCLINE
     Indication: BRONCHITIS
     Dosage: 1 DF, QD
     Route: 065
     Dates: start: 20030131, end: 20030203

REACTIONS (1)
  - Pulmonary embolism [Fatal]

NARRATIVE: CASE EVENT DATE: 20030203
